FAERS Safety Report 10341418 (Version 1)
Quarter: 2014Q3

REPORT INFORMATION
  Report Type: Report from Study
  Country: BE (occurrence: BE)
  Receive Date: 20140725
  Receipt Date: 20140725
  Transmission Date: 20150326
  Serious: Yes (Hospitalization)
  Sender: FDA-Public Use
  Company Number: BE-BIOGENIDEC-2014BI071512

PATIENT
  Age: 35 Year
  Sex: Male

DRUGS (1)
  1. TYSABRI [Suspect]
     Active Substance: NATALIZUMAB
     Indication: PRODUCT USED FOR UNKNOWN INDICATION
     Route: 042
     Dates: start: 20090409, end: 20140627

REACTIONS (2)
  - Status epilepticus [Not Recovered/Not Resolved]
  - Herpes simplex encephalitis [Not Recovered/Not Resolved]

NARRATIVE: CASE EVENT DATE: 20140627
